FAERS Safety Report 4763113-0 (Version None)
Quarter: 2005Q3

REPORT INFORMATION
  Report Type: 
  Country: None (occurrence: None)
  Receive Date: 20050826
  Receipt Date: 20041022
  Transmission Date: 20060218
  Serious: Yes (Death, Other)
  Sender: FDA-Public Use
  Company Number: USA-2004-0013304

PATIENT
  Age: 52 Year
  Sex: Female
  Weight: 55.3 kg

DRUGS (12)
  1. OXYCONTIN [Suspect]
     Indication: PAIN
     Dosage: 40 MG BID
  2. DURAGESIC-100 [Suspect]
     Dosage: 100MCG/HR TRANSDERMAL
     Route: 062
  3. OXYCODONE AND ACETAMINOPHEN [Suspect]
     Dosage: 10MG Q6H
  4. FLEXERIL [Concomitant]
  5. PRILOSEC [Concomitant]
  6. PEPCID [Concomitant]
  7. LOMOTIL [Concomitant]
  8. CODEINE SUL TAB [Concomitant]
  9. CELEXA [Concomitant]
  10. ZIRTEK [Concomitant]
  11. PHENERGAN [Concomitant]
  12. DEPO-ESTRADIOL [Concomitant]

REACTIONS (29)
  - ABDOMINAL DISTENSION [None]
  - ABDOMINAL PAIN [None]
  - ACCIDENTAL OVERDOSE [None]
  - ANXIETY [None]
  - ASTHENIA [None]
  - CHILLS [None]
  - COUGH [None]
  - DECREASED APPETITE [None]
  - DEPRESSION [None]
  - DIARRHOEA [None]
  - DIZZINESS [None]
  - DRUG DEPENDENCE [None]
  - DRUG WITHDRAWAL SYNDROME [None]
  - DYSPNOEA [None]
  - HEADACHE [None]
  - HYPERHIDROSIS [None]
  - HYPOAESTHESIA [None]
  - LYMPHADENOPATHY [None]
  - MUSCLE ATROPHY [None]
  - MUSCULAR WEAKNESS [None]
  - OEDEMA PERIPHERAL [None]
  - PAIN [None]
  - PHARYNGITIS [None]
  - RECTAL HAEMORRHAGE [None]
  - SKIN BURNING SENSATION [None]
  - SOCIAL AVOIDANT BEHAVIOUR [None]
  - VISION BLURRED [None]
  - VOMITING [None]
  - WEIGHT DECREASED [None]
